FAERS Safety Report 11239628 (Version 1)
Quarter: 2015Q3

REPORT INFORMATION
  Report Type: Report from Study
  Country: US (occurrence: US)
  Receive Date: 20150706
  Receipt Date: 20150706
  Transmission Date: 20151125
  Serious: Yes (Death, Life-Threatening, Hospitalization)
  Sender: FDA-Public Use
  Company Number: US-BAYER-2014-178146

PATIENT
  Age: 62 Year
  Sex: Female
  Weight: 86.2 kg

DRUGS (18)
  1. PROMETHAZINE HYDROCHLORIDE. [Concomitant]
     Active Substance: PROMETHAZINE HYDROCHLORIDE
  2. HYDROCHLOROTHIAZIDE. [Concomitant]
     Active Substance: HYDROCHLOROTHIAZIDE
     Dosage: 12.5 MG, UNK
  3. PANTOPRAZOLE SODIUM. [Concomitant]
     Active Substance: PANTOPRAZOLE SODIUM
     Dosage: 40 MG, UNK
  4. MULTIVITAMIN [Concomitant]
     Active Substance: VITAMINS
  5. AZITHROMYCIN [Concomitant]
     Active Substance: AZITHROMYCIN ANHYDROUS
     Dosage: 250 MG, UNK
  6. ATENOLOL. [Concomitant]
     Active Substance: ATENOLOL
  7. FLUZONE (SUBVIRION) [Concomitant]
     Dosage: 60 ?G, UNK
  8. NEXIUM [Concomitant]
     Active Substance: ESOMEPRAZOLE MAGNESIUM
     Dosage: 40 MG, UNK
  9. COLACE [Concomitant]
     Active Substance: DOCUSATE SODIUM
  10. LACTULOSE. [Concomitant]
     Active Substance: LACTULOSE
     Dosage: 10 G/15
  11. FENTANYL. [Concomitant]
     Active Substance: FENTANYL
     Dosage: 50 MCG/HR PATCH
  12. FENTANYL. [Concomitant]
     Active Substance: FENTANYL
     Dosage: 25 ?G/H, UNK
  13. MEGESTROL ACETATE. [Concomitant]
     Active Substance: MEGESTROL ACETATE
     Dosage: 400 MG, UNK
  14. PREDNISONE. [Concomitant]
     Active Substance: PREDNISONE
     Dosage: 20 MG, UNK
  15. NEXAVAR [Suspect]
     Active Substance: SORAFENIB
     Indication: HEPATIC CANCER
     Dosage: 400 MG, BID
     Route: 048
     Dates: start: 201408
  16. OXYCODONE HYDROCHLORIDE. [Concomitant]
     Active Substance: OXYCODONE HYDROCHLORIDE
     Dosage: 10 MG, UNK
  17. SERTRALINE HYDROCHLORIDE. [Concomitant]
     Active Substance: SERTRALINE HYDROCHLORIDE
     Dosage: 50 MG, UNK
  18. NEXAVAR [Suspect]
     Active Substance: SORAFENIB
     Indication: HEPATIC CANCER
     Dosage: 400 MG, BID
     Route: 048
     Dates: start: 20141013, end: 20141229

REACTIONS (29)
  - Hepatocellular carcinoma [Fatal]
  - Dyspnoea [None]
  - Malnutrition [None]
  - Malaise [None]
  - Cardiac arrest [None]
  - Brain natriuretic peptide increased [None]
  - Diarrhoea [Recovered/Resolved]
  - Acute kidney injury [None]
  - Ascites [None]
  - Abdominal distension [None]
  - Blood creatinine increased [None]
  - Unresponsive to stimuli [None]
  - Flank pain [None]
  - Hypophagia [None]
  - Pleural effusion [None]
  - Confusional state [None]
  - Sleep apnoea syndrome [None]
  - Jaundice cholestatic [None]
  - Hypovolaemia [None]
  - Urinary tract infection [None]
  - Hepatic encephalopathy [None]
  - Dry skin [None]
  - Fluid overload [None]
  - Asthenia [None]
  - Pulmonary oedema [None]
  - Pneumonia [None]
  - Ammonia increased [None]
  - Hypotension [None]
  - Liver function test abnormal [None]

NARRATIVE: CASE EVENT DATE: 20141226
